FAERS Safety Report 4989847-0 (Version None)
Quarter: 2006Q2

REPORT INFORMATION
  Report Type: 
  Country: None (occurrence: None)
  Receive Date: 20060503
  Receipt Date: 20060427
  Transmission Date: 20061013
  Serious: Yes (Other)
  Sender: FDA-Public Use
  Company Number: GB-AVENTIS-200614573GDDC

PATIENT
  Sex: Male

DRUGS (1)
  1. RIFADIN [Suspect]
     Route: 048

REACTIONS (1)
  - CONVULSION [None]
